FAERS Safety Report 7914975-7 (Version None)
Quarter: 2011Q4

REPORT INFORMATION
  Report Type: 
  Country: None (occurrence: None)
  Receive Date: 20111115
  Receipt Date: 20110802
  Transmission Date: 20120403
  Serious: No
  Sender: FDA-Public Use
  Company Number: US-BAYER-2011-070969

PATIENT
  Sex: Female

DRUGS (2)
  1. ALEVE (CAPLET) [Suspect]
     Indication: HEADACHE
     Route: 048
  2. ALEVE (CAPLET) [Suspect]
     Indication: ANALGESIC THERAPY

REACTIONS (6)
  - ASTHENIA [None]
  - NAUSEA [None]
  - DIZZINESS [None]
  - CHEST DISCOMFORT [None]
  - PAIN [None]
  - FATIGUE [None]
